FAERS Safety Report 15193346 (Version 1)
Quarter: 2018Q3

REPORT INFORMATION
  Report Type: Report from Study
  Country: GB (occurrence: GB)
  Receive Date: 20180725
  Receipt Date: 20180725
  Transmission Date: 20181010
  Serious: Yes (Hospitalization, Other)
  Sender: FDA-Public Use
  Company Number: GB-ROCHE-1959094

PATIENT
  Age: 51 Year
  Sex: Female
  Weight: 87 kg

DRUGS (3)
  1. METHOTREXATE. [Concomitant]
     Active Substance: METHOTREXATE
     Indication: RHEUMATOID ARTHRITIS
  2. SULPHASALAZINE [Concomitant]
     Active Substance: SULFASALAZINE
     Indication: RHEUMATOID ARTHRITIS
  3. RITUXIMAB. [Suspect]
     Active Substance: RITUXIMAB
     Indication: RHEUMATOID ARTHRITIS
     Dosage: ON 27/APR/2016, SHE RECEIVED THE MOST RECENT DOSE OF RITUXIMAB
     Route: 065
     Dates: start: 20100510

REACTIONS (9)
  - Erosive duodenitis [Unknown]
  - Gastroenteritis [Unknown]
  - Oesophagitis [Unknown]
  - Diarrhoea infectious [Unknown]
  - Pneumonia [Unknown]
  - Upper gastrointestinal haemorrhage [Unknown]
  - Adrenocortical insufficiency acute [Unknown]
  - Abdominal pain lower [Unknown]
  - Gastritis [Unknown]

NARRATIVE: CASE EVENT DATE: 20140615
